FAERS Safety Report 8573774 (Version 5)
Quarter: 2012Q4

REPORT INFORMATION
  Report Type: 
  Country: IT (occurrence: IT)
  Receive Date: 20120522
  Receipt Date: 20121123
  Transmission Date: 20130627
  Serious: Yes (Hospitalization)
  Sender: FDA-Public Use
  Company Number: IT-PFIZER INC-2012122007

PATIENT
  Age: 81 Year
  Sex: Male

DRUGS (2)
  1. SUTENT [Suspect]
     Indication: METASTATIC RENAL CELL CARCINOMA
     Dosage: 50 mg, cyclic, four weeks on and two weeks off
     Dates: start: 20120416, end: 20120510
  2. CARDIRENE [Concomitant]
     Dosage: 1 DF, 1x/day

REACTIONS (4)
  - Hyperbilirubinaemia [Recovering/Resolving]
  - Asthenia [Recovering/Resolving]
  - Skin ulcer [Recovering/Resolving]
  - Rectal haemorrhage [Recovering/Resolving]
